FAERS Safety Report 21008592 (Version 1)
Quarter: 2022Q2

REPORT INFORMATION
  Report Type: Other
  Country: US (occurrence: None)
  Receive Date: 20220627
  Receipt Date: 20220627
  Transmission Date: 20220720
  Serious: Yes (Hospitalization)
  Sender: FDA-Public Use
  Company Number: US-ROCHE-3119376

PATIENT
  Age: 60 Year
  Sex: Male
  Weight: 81.720 kg

DRUGS (5)
  1. OCREVUS [Suspect]
     Active Substance: OCRELIZUMAB
     Indication: Relapsing-remitting multiple sclerosis
     Dosage: YES
     Route: 042
     Dates: start: 2017
  2. LOSARTAN [Concomitant]
     Active Substance: LOSARTAN
     Indication: Hypertension
     Route: 048
  3. PAROXETINE [Concomitant]
     Active Substance: PAROXETINE
     Indication: Anxiety
     Route: 048
  4. PAROXETINE [Concomitant]
     Active Substance: PAROXETINE
     Indication: Stress
  5. ASPIRIN [Concomitant]
     Active Substance: ASPIRIN
     Route: 048

REACTIONS (6)
  - Blindness [Recovered/Resolved]
  - Blindness unilateral [Not Recovered/Not Resolved]
  - Anti-myelin-associated glycoprotein antibodies positive [Not Recovered/Not Resolved]
  - Respiratory disorder [Recovered/Resolved]
  - COVID-19 [Recovered/Resolved]
  - Diarrhoea [Recovered/Resolved]

NARRATIVE: CASE EVENT DATE: 20220501
